FAERS Safety Report 8343406-0 (Version None)
Quarter: 2012Q2

REPORT INFORMATION
  Report Type: 
  Country: None (occurrence: None)
  Receive Date: 20120508
  Receipt Date: 20120426
  Transmission Date: 20120825
  Serious: Yes (Disabling, Other)
  Sender: FDA-Public Use
  Company Number: BE-BRISTOL-MYERS SQUIBB COMPANY-16551822

PATIENT
  Age: 28 Year
  Sex: Female
  Weight: 62 kg

DRUGS (6)
  1. ORENCIA [Suspect]
     Indication: RHEUMATOID ARTHRITIS
     Route: 042
     Dates: start: 20111221, end: 20120328
  2. METHOTREXATE [Concomitant]
     Route: 048
     Dates: start: 20100201
  3. ACETAMINOPHEN [Concomitant]
  4. FOLIC ACID [Concomitant]
     Dates: start: 20100201
  5. ARCOXIA [Concomitant]
  6. PANTOPRAZOLE [Concomitant]

REACTIONS (3)
  - DISTURBANCE IN ATTENTION [None]
  - HEADACHE [None]
  - HYPERSOMNIA [None]
